FAERS Safety Report 6794952-2 (Version None)
Quarter: 2010Q2

REPORT INFORMATION
  Report Type: 
  Country: None (occurrence: None)
  Receive Date: 20100625
  Receipt Date: 20100614
  Transmission Date: 20101027
  Serious: Yes (Other)
  Sender: FDA-Public Use
  Company Number: JP-PFIZER INC-2010074361

PATIENT

DRUGS (1)
  1. AZULFIDINE [Suspect]
     Dosage: UNK
     Route: 048
     Dates: start: 20100101

REACTIONS (4)
  - AGRANULOCYTOSIS [None]
  - PHARYNGITIS [None]
  - PYREXIA [None]
  - WHITE BLOOD CELL COUNT DECREASED [None]
